FAERS Safety Report 11253497 (Version 6)
Quarter: 2015Q3

REPORT INFORMATION
  Report Type: Report from Study
  Country: CA (occurrence: CA)
  Receive Date: 20150709
  Receipt Date: 20150903
  Transmission Date: 20151125
  Serious: Yes (Other)
  Sender: FDA-Public Use
  Company Number: CA-ROCHE-1604088

PATIENT
  Age: 75 Year
  Sex: Male

DRUGS (11)
  1. ESBRIET [Suspect]
     Active Substance: PIRFENIDONE
     Dosage: 534MG-534MG-801MG
     Route: 048
     Dates: start: 20140717
  2. DOMPERIDONE [Concomitant]
     Active Substance: DOMPERIDONE
     Route: 065
  3. ESBRIET [Suspect]
     Active Substance: PIRFENIDONE
     Dosage: 534MG-801MG-801MG
     Route: 048
     Dates: start: 20140908
  4. ZYLOPRIM [Concomitant]
     Active Substance: ALLOPURINOL
     Route: 065
  5. ESBRIET [Suspect]
     Active Substance: PIRFENIDONE
     Route: 048
     Dates: start: 20140624
  6. ESBRIET [Suspect]
     Active Substance: PIRFENIDONE
     Route: 048
     Dates: start: 20140915
  7. ESBRIET [Suspect]
     Active Substance: PIRFENIDONE
     Dosage: 534MG-801MG-801MG
     Route: 048
     Dates: start: 20150504, end: 20150709
  8. COVERSYL PLUS [Concomitant]
     Active Substance: INDAPAMIDE\PERINDOPRIL
     Route: 065
  9. ESBRIET [Suspect]
     Active Substance: PIRFENIDONE
     Indication: IDIOPATHIC PULMONARY FIBROSIS
     Route: 048
     Dates: start: 20140603
  10. ACETYLSALICYLIC ACID [Concomitant]
     Active Substance: ASPIRIN
     Route: 065
  11. TECTA [Concomitant]
     Active Substance: PANTOPRAZOLE MAGNESIUM
     Route: 065

REACTIONS (20)
  - Somnolence [Recovering/Resolving]
  - Drug dose omission [Unknown]
  - Decreased appetite [Unknown]
  - Pallor [Recovering/Resolving]
  - Adrenal gland cancer metastatic [Not Recovered/Not Resolved]
  - Neck injury [Unknown]
  - Back injury [Unknown]
  - Cough [Unknown]
  - Neoplasm malignant [Unknown]
  - Lung cancer metastatic [Not Recovered/Not Resolved]
  - Bone cancer metastatic [Not Recovered/Not Resolved]
  - Pneumonia [Recovering/Resolving]
  - Hypophagia [Recovering/Resolving]
  - Asthenia [Not Recovered/Not Resolved]
  - Dyspepsia [Unknown]
  - Nausea [Not Recovered/Not Resolved]
  - Fatigue [Recovering/Resolving]
  - Cough [Not Recovered/Not Resolved]
  - Headache [Not Recovered/Not Resolved]
  - Abdominal discomfort [Unknown]

NARRATIVE: CASE EVENT DATE: 201408
